FAERS Safety Report 5582210-3 (Version None)
Quarter: 2008Q1

REPORT INFORMATION
  Report Type: 
  Country: None (occurrence: None)
  Receive Date: 20080104
  Receipt Date: 20071221
  Transmission Date: 20080703
  Serious: Yes (Death)
  Sender: FDA-Public Use
  Company Number: DE-GENENTECH-251864

PATIENT
  Sex: Female
  Weight: 48 kg

DRUGS (4)
  1. AVASTIN [Suspect]
     Indication: NEUROENDOCRINE CARCINOMA
     Dosage: 2.5 MG/KG, SINGLE
     Dates: start: 20071015
  2. AVASTIN [Suspect]
     Dosage: 7.5 MG/KG, UNK
     Dates: start: 20071025, end: 20071025
  3. TAXOL [Concomitant]
     Indication: NEUROENDOCRINE CARCINOMA
     Dosage: 90 MG/M2, UNK
     Dates: start: 20071015
  4. TAXOL [Concomitant]
     Dosage: 175 MG/M2, UNK

REACTIONS (4)
  - ANURIA [None]
  - GASTROINTESTINAL PERFORATION [None]
  - GENERAL PHYSICAL HEALTH DETERIORATION [None]
  - NEOPLASM PROGRESSION [None]
